FAERS Safety Report 13960808 (Version 1)
Quarter: 2017Q3

REPORT INFORMATION
  Report Type: Spontaneous
  Country: CA (occurrence: CA)
  Receive Date: 20170912
  Receipt Date: 20170912
  Transmission Date: 20171128
  Serious: Yes (Hospitalization, Other)
  Sender: FDA-Public Use
  Company Number: CA-INDIVIOR LIMITED-INDV-104486-2017

PATIENT
  Age: 66 Year
  Sex: Female

DRUGS (1)
  1. SUBOXONE [Suspect]
     Active Substance: BUPRENORPHINE HYDROCHLORIDE\NALOXONE HYDROCHLORIDE
     Indication: PAIN
     Dosage: 8 MG, TID
     Route: 048
     Dates: start: 201706

REACTIONS (8)
  - Product use issue [Unknown]
  - Decreased appetite [Unknown]
  - Asthenia [Unknown]
  - Off label use [Unknown]
  - Hospitalisation [Unknown]
  - Drug ineffective for unapproved indication [Unknown]
  - Suicidal ideation [Unknown]
  - Loss of personal independence in daily activities [Unknown]

NARRATIVE: CASE EVENT DATE: 2017
